FAERS Safety Report 8057089-0 (Version None)
Quarter: 2012Q1

REPORT INFORMATION
  Report Type: 
  Country: None (occurrence: None)
  Receive Date: 20120119
  Receipt Date: 20120118
  Transmission Date: 20120608
  Serious: Yes (Other)
  Sender: FDA-Public Use
  Company Number: US-PFIZER INC-2012015182

PATIENT
  Age: 63 Year
  Sex: Female
  Weight: 66.213 kg

DRUGS (2)
  1. CHANTIX [Suspect]
     Indication: SMOKING CESSATION THERAPY
     Dosage: 0.5 MG, DAILY
     Dates: start: 20110101, end: 20110101
  2. CHANTIX [Suspect]
     Dosage: UNK
     Dates: start: 20110101, end: 20111201

REACTIONS (1)
  - DEPRESSION [None]
